FAERS Safety Report 8823318 (Version 1)
Quarter: 2012Q4

REPORT INFORMATION
  Report Type: 
  Country: US (occurrence: US)
  Receive Date: 20121003
  Receipt Date: 20121003
  Transmission Date: 20130627
  Serious: Yes (Hospitalization)
  Sender: FDA-Public Use
  Company Number: US-MERCK-1210USA000556

PATIENT
  Age: 45 Year
  Sex: Male

DRUGS (6)
  1. JANUVIA [Suspect]
     Dosage: 100 mg, qd
  2. VICTOZA [Suspect]
     Dosage: 0.6 mg, qd
     Route: 058
  3. METFORMIN [Suspect]
     Dosage: 1000 mg, bid
  4. GLYBURIDE [Suspect]
     Dosage: 2.5 mg, qd
  5. ENALAPRIL MALEATE [Concomitant]
  6. PRILOSEC [Concomitant]

REACTIONS (3)
  - Blood glucose increased [Unknown]
  - Glycosylated haemoglobin increased [Unknown]
  - Pancreatitis acute [Unknown]
